FAERS Safety Report 6399356-2 (Version None)
Quarter: 2009Q4

REPORT INFORMATION
  Report Type: 
  Country: None (occurrence: None)
  Receive Date: 20091014
  Receipt Date: 20091001
  Transmission Date: 20100525
  Serious: Yes (Hospitalization)
  Sender: FDA-Public Use
  Company Number: JP-EISAI INC.-E3810-03196-SPO-JP

PATIENT
  Age: 45 Year
  Sex: Male

DRUGS (4)
  1. PARIET (RABEPRAZOLE) [Suspect]
     Indication: HELICOBACTER INFECTION
     Dosage: UNKNOWN
     Route: 048
     Dates: start: 20090703, end: 20090705
  2. AMOXICILLIN [Suspect]
     Indication: HELICOBACTER INFECTION
     Route: 048
     Dates: start: 20090703, end: 20090705
  3. KLARICID [Concomitant]
     Indication: HELICOBACTER INFECTION
     Dosage: UNKNOWN
     Route: 048
     Dates: start: 20090703, end: 20090705
  4. MIYA BM [Concomitant]
     Route: 048
     Dates: start: 20090703, end: 20090705

REACTIONS (2)
  - DYSPNOEA [None]
  - RASH GENERALISED [None]
